FAERS Safety Report 9717874 (Version 2)
Quarter: 2013Q4

REPORT INFORMATION
  Report Type: Spontaneous
  Country: US (occurrence: US)
  Receive Date: 20131125
  Receipt Date: 20131125
  Transmission Date: 20140711
  Serious: No
  Sender: FDA-Public Use
  Company Number: US-VIVUS-2013V1000318

PATIENT
  Age: 64 Year
  Sex: Female

DRUGS (3)
  1. QSYMIA 3.75MG/23MG [Suspect]
     Indication: WEIGHT DECREASED
     Route: 048
  2. QSYMIA 7.5MG/46MG [Suspect]
     Indication: WEIGHT DECREASED
     Route: 048
     Dates: end: 201304
  3. QSYMIA 7.5MG/46MG [Suspect]
     Route: 048

REACTIONS (4)
  - Urticaria [Recovered/Resolved]
  - Hypoglycaemia [Unknown]
  - Cough [Unknown]
  - Rash generalised [Recovered/Resolved]
